FAERS Safety Report 17232863 (Version 1)
Quarter: 2020Q1

REPORT INFORMATION
  Report Type: Spontaneous
  Country: US (occurrence: US)
  Receive Date: 20200103
  Receipt Date: 20200103
  Transmission Date: 20200409
  Serious: No
  Sender: FDA-Public Use
  Company Number: US-MCGUFF PHARMACEUTICALS, INC.-2078498

PATIENT

DRUGS (1)
  1. ASCOR [Suspect]
     Active Substance: ASCORBIC ACID
     Indication: FATIGUE
     Route: 041

REACTIONS (1)
  - Headache [Recovered/Resolved]

NARRATIVE: CASE EVENT DATE: 20191204
